FAERS Safety Report 17747522 (Version 4)
Quarter: 2020Q3

REPORT INFORMATION
  Report Type: Spontaneous
  Country: PR (occurrence: PR)
  Receive Date: 20200505
  Receipt Date: 20200525
  Transmission Date: 20201104
  Serious: Yes (Hospitalization, Other)
  Sender: FDA-Public Use
  Company Number: PR-CELGENEUS-PRI-20200405298

PATIENT
  Age: 47 Year
  Sex: Female
  Weight: 86.6 kg

DRUGS (23)
  1. METFORMIN [Concomitant]
     Active Substance: METFORMIN HYDROCHLORIDE
     Dosage: 500 MILLIGRAM
     Route: 048
     Dates: start: 20190322
  2. CYCLOBENZAPRINE HCL [Concomitant]
     Active Substance: CYCLOBENZAPRINE HYDROCHLORIDE
     Indication: MUSCLE SPASMS
     Dosage: 10 MILLIGRAM
     Route: 048
     Dates: start: 2014
  3. RANITIDINE. [Concomitant]
     Active Substance: RANITIDINE
     Indication: GASTRITIS
     Dosage: 300 MILLIGRAM
     Route: 048
     Dates: start: 2014
  4. FLUOXETINE [Concomitant]
     Active Substance: FLUOXETINE HYDROCHLORIDE
     Indication: ANXIETY
     Dosage: 40 MILLIGRAM
     Route: 048
     Dates: start: 2018
  5. NEURONTIN [Concomitant]
     Active Substance: GABAPENTIN
     Indication: PSORIASIS
     Dosage: 300 MILLIGRAM
     Route: 048
     Dates: start: 201908
  6. CLARITHROMYCIN. [Concomitant]
     Active Substance: CLARITHROMYCIN
     Indication: PRODUCT USED FOR UNKNOWN INDICATION
     Route: 065
     Dates: start: 2011
  7. OTEZLA [Suspect]
     Active Substance: APREMILAST
     Indication: PSORIASIS
     Dosage: 1 TABLET
     Route: 048
     Dates: start: 20191001, end: 202003
  8. FAMOTIDINE. [Concomitant]
     Active Substance: FAMOTIDINE
     Indication: GASTRITIS
     Dosage: 20 MILLIGRAM
     Route: 048
     Dates: start: 2014
  9. ACETAMINOPHEN. [Concomitant]
     Active Substance: ACETAMINOPHEN
     Indication: MIGRAINE
     Dosage: 325 MILLIGRAM
     Route: 065
     Dates: start: 2013
  10. NEURONTIN [Concomitant]
     Active Substance: GABAPENTIN
     Indication: PSORIATIC ARTHROPATHY
  11. TUSNEL NEW FORMULA [Concomitant]
     Indication: PRODUCT USED FOR UNKNOWN INDICATION
     Dosage: 30?15?200 MG/5 ML?TAKE 10ML
     Route: 048
  12. METFORMIN [Concomitant]
     Active Substance: METFORMIN HYDROCHLORIDE
     Indication: DIABETES MELLITUS
     Dosage: 500 MILLIGRAM
     Route: 048
     Dates: start: 2014
  13. DICYCLOVERINE HCL [Concomitant]
     Indication: GASTRITIS
     Dosage: 20 MILLIGRAM
     Route: 048
     Dates: start: 2014
  14. LORATADINE. [Concomitant]
     Active Substance: LORATADINE
     Indication: CHRONIC SINUSITIS
     Dosage: 10 MILLIGRAM
     Route: 048
     Dates: start: 2011
  15. OTEZLA [Suspect]
     Active Substance: APREMILAST
     Dosage: 1 TABLET
     Route: 048
     Dates: start: 202003
  16. BUTALBITAL/CAFFEINE/ACETAMINOPHEN [Concomitant]
     Indication: MIGRAINE
     Dosage: 325 MILLIGRAM
     Route: 048
     Dates: start: 2013
  17. MOTRIN [Concomitant]
     Active Substance: IBUPROFEN
     Indication: PSORIASIS
     Dosage: 800 MILLIGRAM
     Route: 048
     Dates: start: 1982
  18. DEUCRAVACITINIB. [Suspect]
     Active Substance: DEUCRAVACITINIB
     Dosage: 1 TABLET
     Route: 048
     Dates: start: 202003
  19. LORAZEPAM. [Concomitant]
     Active Substance: LORAZEPAM
     Indication: MAJOR DEPRESSION
     Dosage: 1 MILLIGRAM
     Route: 048
     Dates: start: 2018
  20. DEUCRAVACITINIB. [Suspect]
     Active Substance: DEUCRAVACITINIB
     Indication: PSORIASIS
     Dosage: 1 TABLET
     Route: 048
     Dates: start: 20191001, end: 202003
  21. MOTRIN [Concomitant]
     Active Substance: IBUPROFEN
     Indication: PSORIATIC ARTHROPATHY
  22. LORAZEPAM. [Concomitant]
     Active Substance: LORAZEPAM
     Dosage: 1 MILLIGRAM
     Route: 048
     Dates: start: 20200305
  23. ASPIRIN. [Concomitant]
     Active Substance: ASPIRIN
     Indication: PRODUCT USED FOR UNKNOWN INDICATION
     Dosage: 81 MILLIGRAM
     Route: 048
     Dates: start: 20190322

REACTIONS (2)
  - Mycoplasma infection [Recovered/Resolved]
  - Respiratory tract infection [Recovered/Resolved]

NARRATIVE: CASE EVENT DATE: 20200304
